FAERS Safety Report 26194067 (Version 1)
Quarter: 2025Q4

REPORT INFORMATION
  Report Type: Spontaneous
  Country: JP (occurrence: JP)
  Receive Date: 20251224
  Receipt Date: 20251224
  Transmission Date: 20260118
  Serious: Yes (Hospitalization)
  Sender: MERCK SHARP & DOHME LLC
  Company Number: JP-009507513-2327179

PATIENT
  Age: 8 Decade
  Sex: Male

DRUGS (6)
  1. KEYTRUDA [Suspect]
     Active Substance: PEMBROLIZUMAB
     Indication: Bile duct cancer
     Dosage: 200 MG ONCE EVERY 3 WEEKS (1 CYCLE)
     Route: 041
     Dates: start: 202508, end: 202508
  2. KEYTRUDA [Suspect]
     Active Substance: PEMBROLIZUMAB
     Indication: Bile duct cancer
     Dosage: RESUMPTION OF GCP
     Route: 041
     Dates: start: 202511
  3. GEMCITABINE [Suspect]
     Active Substance: GEMCITABINE
     Indication: Bile duct cancer
     Dosage: TIME INTERVAL: CYCLICAL: 1000MG/M2 ? 2/3 WEEKS
     Route: 041
     Dates: start: 202508, end: 202509
  4. GEMCITABINE [Suspect]
     Active Substance: GEMCITABINE
     Indication: Bile duct cancer
     Dosage: TIME INTERVAL: CYCLICAL: 1000MG/M2 ? 2/3 WEEKS; RESUMPTION OF GCP
     Route: 041
     Dates: start: 202511
  5. CISPLATIN [Suspect]
     Active Substance: CISPLATIN
     Indication: Bile duct cancer
     Dosage: TIME INTERVAL: CYCLICAL: 25MG/M2 ? 2/3 WEEKS
     Route: 041
     Dates: start: 202508, end: 202509
  6. CISPLATIN [Suspect]
     Active Substance: CISPLATIN
     Indication: Bile duct cancer
     Dosage: TIME INTERVAL: CYCLICAL: 25MG/M2 ? 2/3 WEEKS; RESUMPTION OF GCP
     Route: 041
     Dates: start: 202511

REACTIONS (1)
  - Device occlusion [Recovered/Resolved]

NARRATIVE: CASE EVENT DATE: 20250904
